FAERS Safety Report 16169968 (Version 1)
Quarter: 2019Q2

REPORT INFORMATION
  Report Type: Report from Study
  Country: US (occurrence: US)
  Receive Date: 20190408
  Receipt Date: 20190408
  Transmission Date: 20190711
  Serious: Yes (Other)
  Sender: FDA-Public Use
  Company Number: US-SA-2015SA088187

PATIENT
  Age: 64 Year
  Sex: Female

DRUGS (2)
  1. INSULIN GLARGINE [Suspect]
     Active Substance: INSULIN GLARGINE
     Dosage: 20 DF, BID
     Dates: start: 2015
  2. INSULIN GLARGINE [Suspect]
     Active Substance: INSULIN GLARGINE
     Indication: TYPE 2 DIABETES MELLITUS
     Dosage: 30 DF, QD
     Dates: start: 20150422

REACTIONS (4)
  - Off label use [Unknown]
  - Renal transplant [Unknown]
  - Blood glucose fluctuation [Unknown]
  - Product storage error [Unknown]

NARRATIVE: CASE EVENT DATE: 2015
